FAERS Safety Report 9700316 (Version 1)
Quarter: 2013Q4

REPORT INFORMATION
  Report Type: Spontaneous
  Country: CN (occurrence: CN)
  Receive Date: 20131121
  Receipt Date: 20131121
  Transmission Date: 20140711
  Serious: Yes (Life-Threatening)
  Sender: FDA-Public Use
  Company Number: CN-BAYER-2013-137770

PATIENT
  Age: 61 Year
  Sex: Male

DRUGS (1)
  1. AVELOX [Suspect]
     Dosage: 250 ML, QD
     Route: 041
     Dates: start: 20111125, end: 20111205

REACTIONS (1)
  - Bipolar I disorder [Recovered/Resolved]
